FAERS Safety Report 6036494-8 (Version None)
Quarter: 2009Q1

REPORT INFORMATION
  Report Type: 
  Country: None (occurrence: None)
  Receive Date: 20090112
  Receipt Date: 20081224
  Transmission Date: 20090719
  Serious: Yes (Life-Threatening, Other)
  Sender: FDA-Public Use
  Company Number: 2008VX002621

PATIENT
  Age: 61 Year
  Sex: Female
  Weight: 65 kg

DRUGS (12)
  1. NEOSTIGMINE BROMIDE (NEOSTIGMINE BROMIDE) [Suspect]
     Indication: ROTATOR CUFF REPAIR
     Dosage: 42.6 MG/KG; X1; IV
     Route: 042
  2. CLONIDINE [Concomitant]
  3. FENTANYL [Concomitant]
  4. ROPIVACAINE [Concomitant]
  5. PROPOFOL [Concomitant]
  6. ROCURONIUM BROMIDE [Concomitant]
  7. SEVOFLURANE [Concomitant]
  8. DEXAMETHASONE TAB [Concomitant]
  9. ONDANSETRON [Concomitant]
  10. KETOPROFEN [Concomitant]
  11. DIPYRONE [Concomitant]
  12. ATROPINE [Concomitant]

REACTIONS (6)
  - BLOOD PRESSURE INCREASED [None]
  - CARDIAC ARREST [None]
  - HEART RATE INCREASED [None]
  - HYPERCAPNIA [None]
  - NEUROMUSCULAR BLOCK PROLONGED [None]
  - SOMNOLENCE [None]
